FAERS Safety Report 6753883-4 (Version None)
Quarter: 2010Q2

REPORT INFORMATION
  Report Type: 
  Country: None (occurrence: None)
  Receive Date: 20100603
  Receipt Date: 20100524
  Transmission Date: 20101027
  Serious: Yes (Other)
  Sender: FDA-Public Use
  Company Number: US-AMGEN-KDL414127

PATIENT
  Sex: Male

DRUGS (1)
  1. ENBREL [Suspect]
     Indication: PSORIATIC ARTHROPATHY
     Route: 058
     Dates: start: 20100515

REACTIONS (5)
  - ANXIETY [None]
  - DYSPNOEA [None]
  - NAUSEA [None]
  - RESPIRATORY DISORDER [None]
  - VISION BLURRED [None]
